FAERS Safety Report 18818061 (Version 1)
Quarter: 2021Q1

REPORT INFORMATION
  Report Type: Spontaneous
  Country: FR (occurrence: FR)
  Receive Date: 20210202
  Receipt Date: 20210202
  Transmission Date: 20210419
  Serious: Yes (Other)
  Sender: FDA-Public Use
  Company Number: FR-ROCHE-2760911

PATIENT
  Age: 67 Year
  Sex: Male
  Weight: 83.5 kg

DRUGS (1)
  1. AVASTIN [Suspect]
     Active Substance: BEVACIZUMAB
     Indication: HEREDITARY HAEMORRHAGIC TELANGIECTASIA
     Route: 041
     Dates: start: 20201224, end: 20201224

REACTIONS (1)
  - Myocarditis [Not Recovered/Not Resolved]

NARRATIVE: CASE EVENT DATE: 20210107
